FAERS Safety Report 21143299 (Version 3)
Quarter: 2022Q4

REPORT INFORMATION
  Report Type: Report from Study
  Country: US (occurrence: US)
  Receive Date: 20220728
  Receipt Date: 20221208
  Transmission Date: 20230112
  Serious: No
  Sender: FDA-Public Use
  Company Number: US-BIOVITRUM-2022US08843

PATIENT
  Age: 36 Year
  Sex: Male

DRUGS (2)
  1. KINERET [Suspect]
     Active Substance: ANAKINRA
     Indication: Crohn^s disease
     Dates: start: 20190531
  2. KINERET [Suspect]
     Active Substance: ANAKINRA
     Dates: start: 202210

REACTIONS (8)
  - Nausea [Unknown]
  - Sleep disorder [Unknown]
  - Hunger [Unknown]
  - Stress [Unknown]
  - Herpes zoster [Unknown]
  - Fluid retention [Unknown]
  - Intentional dose omission [Unknown]
  - Off label use [Unknown]

NARRATIVE: CASE EVENT DATE: 20190531
